FAERS Safety Report 11311029 (Version 3)
Quarter: 2015Q4

REPORT INFORMATION
  Report Type: Report from Study
  Country: DE (occurrence: DE)
  Receive Date: 20150727
  Receipt Date: 20151014
  Transmission Date: 20160304
  Serious: Yes (Other)
  Sender: FDA-Public Use
  Company Number: DE-ROCHE-1612765

PATIENT
  Age: 75 Year
  Sex: Female
  Weight: 64 kg

DRUGS (3)
  1. RANIBIZUMAB [Suspect]
     Active Substance: RANIBIZUMAB
     Indication: NEOVASCULAR AGE-RELATED MACULAR DEGENERATION
     Dosage: IN RIGHT EYE
     Route: 050
     Dates: start: 20140605
  2. RANIBIZUMAB [Suspect]
     Active Substance: RANIBIZUMAB
     Dosage: IN RIGHT EYE
     Route: 050
     Dates: start: 20140707
  3. RANIBIZUMAB [Suspect]
     Active Substance: RANIBIZUMAB
     Dosage: IN RIGHT EYE
     Route: 050
     Dates: start: 20140821

REACTIONS (2)
  - Vitreous haemorrhage [Recovered/Resolved]
  - Visual acuity reduced [Recovered/Resolved]

NARRATIVE: CASE EVENT DATE: 20140710
